FAERS Safety Report 10803887 (Version 1)
Quarter: 2015Q1

REPORT INFORMATION
  Report Type: Spontaneous
  Country: US (occurrence: US)
  Receive Date: 20150217
  Receipt Date: 20150217
  Transmission Date: 20150721
  Serious: Yes (Hospitalization, Other)
  Sender: FDA-Public Use
  Company Number: US-WATSON-2015-01900

PATIENT
  Sex: Male

DRUGS (2)
  1. DEPO-TESTOSTERONE [Suspect]
     Active Substance: TESTOSTERONE CYPIONATE
     Indication: HYPOGONADISM MALE
     Dosage: UNK UNK, UNKNOWN
     Route: 065
     Dates: start: 20130214
  2. ANDRODERM [Suspect]
     Active Substance: TESTOSTERONE
     Indication: HYPOGONADISM MALE
     Dosage: UNK UNK, UNKNOWN
     Route: 062
     Dates: start: 20120809

REACTIONS (3)
  - Cerebrovascular accident [Unknown]
  - Deep vein thrombosis [Unknown]
  - Pulmonary embolism [Unknown]

NARRATIVE: CASE EVENT DATE: 20130409
